FAERS Safety Report 4381256-0 (Version None)
Quarter: 2004Q2

REPORT INFORMATION
  Report Type: 
  Country: None (occurrence: None)
  Receive Date: 20040621
  Receipt Date: 20040610
  Transmission Date: 20050107
  Serious: Yes (Hospitalization)
  Sender: FDA-Public Use
  Company Number: FR-BRISTOL-MYERS SQUIBB COMPANY-12611208

PATIENT
  Age: 48 Year

DRUGS (6)
  1. PERFALGAN IV [Suspect]
     Indication: PAIN IN EXTREMITY
     Route: 042
     Dates: start: 20040226, end: 20040308
  2. BRISTOPEN CAPS 500 MG [Suspect]
     Route: 048
     Dates: start: 20040302, end: 20040312
  3. PROFENID [Suspect]
     Indication: PAIN IN EXTREMITY
     Route: 042
     Dates: start: 20040226, end: 20040303
  4. MOPRAL [Suspect]
     Route: 048
     Dates: start: 20040226, end: 20040310
  5. MYOLASTAN [Concomitant]
     Indication: PAIN IN EXTREMITY
     Dates: start: 20040302, end: 20040310
  6. MORPHINE [Concomitant]
     Indication: PAIN IN EXTREMITY
     Dates: start: 20040226

REACTIONS (1)
  - CYTOLYTIC HEPATITIS [None]
